FAERS Safety Report 4448064-3 (Version None)
Quarter: 2004Q3

REPORT INFORMATION
  Report Type: 
  Country: None (occurrence: None)
  Receive Date: 20040817
  Receipt Date: 20040610
  Transmission Date: 20050211
  Serious: Yes (Other)
  Sender: FDA-Public Use
  Company Number: PHEH2004US06402

PATIENT
  Age: 57 Year
  Sex: Female

DRUGS (6)
  1. DIOVAN [Suspect]
     Indication: HYPERTENSION
     Dosage: 160 MG, QD, ORAL
     Route: 048
     Dates: start: 20031101, end: 20040515
  2. ATENOLOL [Concomitant]
  3. TENORMIN [Concomitant]
  4. FIORICET [Concomitant]
  5. TEMAZEPAM [Concomitant]
  6. TIZANIDINE HYDROCHLORIDE [Concomitant]

REACTIONS (3)
  - BACK PAIN [None]
  - DIZZINESS [None]
  - HYPOTENSION [None]
